FAERS Safety Report 7028687-8 (Version None)
Quarter: 2010Q4

REPORT INFORMATION
  Report Type: 
  Country: None (occurrence: None)
  Receive Date: 20101005
  Receipt Date: 20100928
  Transmission Date: 20110411
  Serious: Yes (Hospitalization)
  Sender: FDA-Public Use
  Company Number: US-AMGEN-KDC441807

PATIENT
  Weight: 3.47 kg

DRUGS (5)
  1. ENBREL [Suspect]
     Route: 064
     Dates: start: 20090625, end: 20100409
  2. PREDNISONE [Concomitant]
     Route: 064
     Dates: start: 20090625, end: 20100409
  3. PRENATAL VITAMINS [Concomitant]
     Route: 064
     Dates: start: 20090625, end: 20100409
  4. INFLUENZA A (H1N1) MONOVALENT VACCINE [Concomitant]
     Route: 064
     Dates: start: 20091101, end: 20091110
  5. TYLENOL [Concomitant]
     Route: 064
     Dates: start: 20090625, end: 20100122

REACTIONS (2)
  - ESCHERICHIA INFECTION [None]
  - URINARY TRACT INFECTION NEONATAL [None]
